FAERS Safety Report 17589463 (Version 1)
Quarter: 2020Q1

REPORT INFORMATION
  Report Type: Spontaneous
  Country: US (occurrence: US)
  Receive Date: 20200324
  Receipt Date: 20200324
  Transmission Date: 20200409
  Serious: No
  Sender: FDA-Public Use
  Company Number: None

PATIENT

DRUGS (1)
  1. TRANSDERM SCOP [Suspect]
     Active Substance: SCOPOLAMINE

REACTIONS (5)
  - Cough [None]
  - Vomiting [None]
  - Foreign body [None]
  - Accidental exposure to product [None]
  - Accidental exposure to product packaging [None]
